FAERS Safety Report 17166745 (Version 1)
Quarter: 2019Q4

REPORT INFORMATION
  Report Type: Spontaneous
  Country: US (occurrence: US)
  Receive Date: 20191217
  Receipt Date: 20191217
  Transmission Date: 20200122
  Serious: No
  Sender: FDA-Public Use
  Company Number: US-VIFOR (INTERNATIONAL) INC.-VIT-2019-14737

PATIENT
  Age: 99 Year
  Sex: Male

DRUGS (7)
  1. TAMULOSIN [Concomitant]
     Active Substance: TAMSULOSIN
  2. NIFEDIPINE. [Concomitant]
     Active Substance: NIFEDIPINE
  3. BABY ASPIRIN [Concomitant]
     Active Substance: ASPIRIN
  4. VELTASSA [Suspect]
     Active Substance: PATIROMER
     Indication: HYPERKALAEMIA
     Dates: start: 20191025
  5. FUROSEMIDE. [Concomitant]
     Active Substance: FUROSEMIDE
  6. ZOCOR [Concomitant]
     Active Substance: SIMVASTATIN
     Dosage: 1/2 TABLET
  7. VELTASSA [Suspect]
     Active Substance: PATIROMER
     Dates: start: 20191108

REACTIONS (2)
  - Blood magnesium decreased [Unknown]
  - Constipation [Recovered/Resolved]

NARRATIVE: CASE EVENT DATE: 20191116
